FAERS Safety Report 5118871-2 (Version None)
Quarter: 2006Q3

REPORT INFORMATION
  Report Type: 
  Country: None (occurrence: None)
  Receive Date: 20060925
  Receipt Date: 20060911
  Transmission Date: 20061208
  Serious: Yes (Hospitalization, Other)
  Sender: FDA-Public Use
  Company Number: 2006BH011836

PATIENT
  Age: 2 Year
  Sex: Female
  Weight: 16.6 kg

DRUGS (2)
  1. IVEEGAM [Suspect]
     Indication: KAWASAKI'S DISEASE
     Dosage: 2 ; IV
     Route: 042
     Dates: start: 20060510, end: 20060510
  2. ASPIRIN [Concomitant]

REACTIONS (2)
  - PYREXIA [None]
  - THERAPY NON-RESPONDER [None]
